FAERS Safety Report 6700991-X (Version None)
Quarter: 2010Q2

REPORT INFORMATION
  Report Type: 
  Country: None (occurrence: None)
  Receive Date: 20100428
  Receipt Date: 20100416
  Transmission Date: 20101027
  Serious: Yes (Other)
  Sender: FDA-Public Use
  Company Number: BR-PFIZER INC-2010035099

PATIENT
  Age: 52 Year
  Sex: Male
  Weight: 85 kg

DRUGS (7)
  1. VIAGRA [Suspect]
     Indication: PROSTATECTOMY
     Dosage: 50 MG, 1 TABLET AS NEEDED
     Route: 048
     Dates: start: 20090901, end: 20100201
  2. BALCOR [Concomitant]
     Dosage: 60 MG, UNK
     Dates: start: 20081025
  3. SUSTRATE [Concomitant]
     Dosage: 10 MG, UNK
     Dates: start: 20081025
  4. CLOPIDOGREL [Concomitant]
     Dosage: 75 MG, UNK
     Dates: start: 20081025
  5. SIMVASTATIN [Concomitant]
     Dosage: 40 MG, UNK
     Dates: start: 20081025
  6. ANAFRANIL [Concomitant]
     Dosage: 75 MG, UNK
     Dates: start: 19940101
  7. RIVOTRIL [Concomitant]
     Dosage: 2 MG, UNK

REACTIONS (4)
  - DRUG INEFFECTIVE [None]
  - HERNIA REPAIR [None]
  - UMBILICAL HERNIA REPAIR [None]
  - WEIGHT DECREASED [None]
